FAERS Safety Report 6070785-X (Version None)
Quarter: 2009Q1

REPORT INFORMATION
  Report Type: 
  Country: None (occurrence: None)
  Receive Date: 20090209
  Receipt Date: 20090112
  Transmission Date: 20090719
  Serious: No
  Sender: FDA-Public Use
  Company Number: A0686962A

PATIENT
  Age: 21 Year
  Sex: Male

DRUGS (5)
  1. PAXIL [Suspect]
     Indication: BIPOLAR DISORDER
     Dates: start: 20070101
  2. PAXIL CR [Suspect]
     Route: 048
     Dates: start: 20071101, end: 20071101
  3. PAROXETINE HCL [Suspect]
     Indication: DRUG USE FOR UNKNOWN INDICATION
     Dates: start: 20040101, end: 20070901
  4. ABILIFY [Concomitant]
  5. EFFEXOR [Concomitant]

REACTIONS (8)
  - ANXIETY [None]
  - DRUG ADMINISTRATION ERROR [None]
  - DRUG INEFFECTIVE [None]
  - EJACULATION DISORDER [None]
  - LIBIDO DECREASED [None]
  - MENTAL IMPAIRMENT [None]
  - NERVOUSNESS [None]
  - SEXUAL DYSFUNCTION [None]
